FAERS Safety Report 8161534-X (Version None)
Quarter: 2012Q1

REPORT INFORMATION
  Report Type: 
  Country: None (occurrence: None)
  Receive Date: 20120224
  Receipt Date: 20120105
  Transmission Date: 20120608
  Serious: Yes (Other)
  Sender: FDA-Public Use
  Company Number: IE-COVIDIEN/TYCO HEALTHCARE/MALLINCKRODT-T201200678

PATIENT
  Sex: Female
  Weight: 57.2 kg

DRUGS (1)
  1. OPTIRAY 160 [Suspect]
     Indication: COMPUTERISED TOMOGRAM
     Dosage: 90 ML, SINGLE
     Route: 042
     Dates: start: 20120105, end: 20120105

REACTIONS (5)
  - RASH [None]
  - ASTHENIA [None]
  - MALAISE [None]
  - THROAT TIGHTNESS [None]
  - BRONCHOSPASM [None]
